FAERS Safety Report 23289028 (Version 1)
Quarter: 2023Q4

REPORT INFORMATION
  Report Type: Spontaneous
  Country: US (occurrence: US)
  Receive Date: 20231212
  Receipt Date: 20231212
  Transmission Date: 20240110
  Serious: Yes (Other)
  Sender: FDA-Public Use
  Company Number: US-MLMSERVICE-20231121-4675115-1

PATIENT
  Age: 58 Year
  Sex: Female

DRUGS (2)
  1. PREDNISONE [Suspect]
     Active Substance: PREDNISONE
     Indication: Postpartum hypopituitarism
     Dosage: UNKNOWN
     Route: 065
  2. LEVOTHYROXINE [Concomitant]
     Active Substance: LEVOTHYROXINE
     Indication: Postpartum hypopituitarism
     Dosage: UNKNOWN
     Route: 065

REACTIONS (3)
  - Unmasking of previously unidentified disease [Recovering/Resolving]
  - Adrenal insufficiency [Recovering/Resolving]
  - Diabetes insipidus [Recovering/Resolving]
